FAERS Safety Report 5118022-4 (Version None)
Quarter: 2006Q3

REPORT INFORMATION
  Report Type: 
  Country: None (occurrence: None)
  Receive Date: 20060929
  Receipt Date: 20031031
  Transmission Date: 20061208
  Serious: Yes (Congenital Anomaly)
  Sender: FDA-Public Use
  Company Number: 12428397

PATIENT
  Sex: Female
  Weight: 3 kg

DRUGS (3)
  1. SUSTIVA [Suspect]
     Dosage: EXPOSURE BEGAN AT CONCEPTION UNTIL WEEK 3 + 3 DAYS
     Route: 064
  2. ZIDOVUDINE [Suspect]
     Dosage: EXPOSURE LASTED 36 WEEKS + 2 DAYS
     Route: 064
  3. LAMIVUDINE [Suspect]
     Dosage: EXPOSURE LASTED 36 WEEKS + 2 DAYS
     Route: 064

REACTIONS (3)
  - DYSMORPHISM [None]
  - HAEMANGIOMA [None]
  - PREGNANCY [None]
